FAERS Safety Report 7602686-7 (Version None)
Quarter: 2011Q3

REPORT INFORMATION
  Report Type: 
  Country: None (occurrence: None)
  Receive Date: 20110701
  Receipt Date: 20091130
  Transmission Date: 20111222
  Serious: Yes (Other)
  Sender: FDA-Public Use
  Company Number: SIM_00030_2011

PATIENT
  Sex: Male

DRUGS (1)
  1. CHILDRENS EARACHE RELIEF (HOMEOPATHIC) [Suspect]
     Indication: HORDEOLUM
     Dosage: (DF OPHTHALMIC)
     Route: 047
     Dates: start: 20091129, end: 20091129

REACTIONS (3)
  - ACCIDENTAL EXPOSURE [None]
  - WRONG DRUG ADMINISTERED [None]
  - EYE SWELLING [None]
